FAERS Safety Report 4693584-X (Version None)
Quarter: 2005Q2

REPORT INFORMATION
  Report Type: 
  Country: None (occurrence: None)
  Receive Date: 20050615
  Receipt Date: 20050601
  Transmission Date: 20051028
  Serious: Yes (Hospitalization)
  Sender: FDA-Public Use
  Company Number: 02100-JPN-05-0192

PATIENT
  Age: 80 Year
  Sex: Female

DRUGS (9)
  1. CILOSTAZOL [Suspect]
     Indication: LACUNAR INFARCTION
     Dosage: 100 MG
     Route: 048
     Dates: start: 20050413, end: 20050419
  2. LOSARTAN POTASSIUM [Concomitant]
  3. TORSEMIDE [Concomitant]
  4. AMLODIPINE BESYLATE [Concomitant]
  5. ALLOPURINOL [Concomitant]
  6. FLUTICASONE PROPIONATE [Concomitant]
  7. ATORVASTATIN CALCIUM HYDRATE [Concomitant]
  8. SENNOSIDE [Concomitant]
  9. LANSOPRAZOLE [Concomitant]

REACTIONS (7)
  - CARDIAC FAILURE [None]
  - CONDITION AGGRAVATED [None]
  - HEADACHE [None]
  - OEDEMA [None]
  - PALPITATIONS [None]
  - PLEURAL EFFUSION [None]
  - STRIDOR [None]
